FAERS Safety Report 7184621-1 (Version None)
Quarter: 2010Q4

REPORT INFORMATION
  Report Type: 
  Country: None (occurrence: None)
  Receive Date: 20101222
  Receipt Date: 20100521
  Transmission Date: 20110411
  Serious: No
  Sender: FDA-Public Use
  Company Number: US-AMGEN-TCS413828

PATIENT

DRUGS (2)
  1. ENBREL [Suspect]
     Indication: PSORIATIC ARTHROPATHY
     Dosage: 50 MG, QWK
     Route: 058
     Dates: start: 20030830
  2. ENBREL [Suspect]
     Indication: PSORIASIS

REACTIONS (5)
  - CHILLS [None]
  - LACRIMATION INCREASED [None]
  - SCRATCH [None]
  - SKIN HAEMORRHAGE [None]
  - URTICARIA [None]
